FAERS Safety Report 4361040-4 (Version None)
Quarter: 2004Q2

REPORT INFORMATION
  Report Type: 
  Country: None (occurrence: None)
  Receive Date: 20040517
  Receipt Date: 20040505
  Transmission Date: 20050107
  Serious: Yes (Disabling)
  Sender: FDA-Public Use
  Company Number: 2004030725

PATIENT
  Age: 48 Year
  Sex: Female
  Weight: 50 kg

DRUGS (6)
  1. VFEND [Suspect]
     Indication: BRONCHOPULMONARY ASPERGILLOSIS
     Dosage: 200 MG (200 MG, 1 IN 1 D), ORAL
     Route: 048
     Dates: start: 20031201, end: 20040423
  2. TACROLIMUS (TACROLIMUS) [Concomitant]
  3. PREDNISOLONE [Concomitant]
  4. RAMIPRIL [Concomitant]
  5. PRAVASTATIN [Concomitant]
  6. LANSOPRAZOLE [Concomitant]

REACTIONS (2)
  - RETINAL ARTERY OCCLUSION [None]
  - RETINAL HAEMORRHAGE [None]
